FAERS Safety Report 17155085 (Version 1)
Quarter: 2019Q4

REPORT INFORMATION
  Report Type: Spontaneous
  Country: US (occurrence: US)
  Receive Date: 20191214
  Receipt Date: 20191214
  Transmission Date: 20200122
  Serious: No
  Sender: FDA-Public Use
  Company Number: US-MYLANLABS-2019M1123558

PATIENT
  Age: 36 Year
  Sex: Female
  Weight: 62.6 kg

DRUGS (3)
  1. EPIPEN [Suspect]
     Active Substance: EPINEPHRINE
     Indication: MASTOCYTOSIS
     Dosage: 0.3 MILLIGRAM, ADULT AUTO-INJECTOR
     Route: 065
  2. EPIPEN [Suspect]
     Active Substance: EPINEPHRINE
     Indication: HYPERSENSITIVITY
  3. EPIPEN [Suspect]
     Active Substance: EPINEPHRINE
     Indication: HISTAMINE ABNORMAL

REACTIONS (1)
  - Off label use [Unknown]
